FAERS Safety Report 6234051-1 (Version None)
Quarter: 2009Q2

REPORT INFORMATION
  Report Type: 
  Country: None (occurrence: None)
  Receive Date: 20090618
  Receipt Date: 20090609
  Transmission Date: 20091009
  Serious: Yes (Other)
  Sender: FDA-Public Use
  Company Number: PHEH2009US05962

PATIENT
  Sex: Female

DRUGS (3)
  1. GLEEVEC [Suspect]
     Indication: CHRONIC MYELOID LEUKAEMIA
     Dosage: UNK
     Dates: start: 20041101, end: 20090401
  2. SEROQUEL [Concomitant]
  3. BUSPIRONE HCL [Concomitant]

REACTIONS (3)
  - GAIT DISTURBANCE [None]
  - HEMIPARESIS [None]
  - MOTOR DYSFUNCTION [None]
